FAERS Safety Report 4308781-2 (Version None)
Quarter: 2004Q1

REPORT INFORMATION
  Report Type: 
  Country: None (occurrence: None)
  Receive Date: 20040301
  Receipt Date: 20040301
  Transmission Date: 20041129
  Serious: Yes (Death)
  Sender: FDA-Public Use
  Company Number: None

PATIENT
  Age: 74 Year
  Sex: Male
  Weight: 78.0187 kg

DRUGS (4)
  1. CYPHER CORONARY ARTERY STENT -DRUG ELUTING [Suspect]
  2. PLAVIX [Concomitant]
  3. HEPARIN [Concomitant]
  4. INTEGRILIN [Concomitant]

REACTIONS (1)
  - CORONARY ARTERY THROMBOSIS [None]
